FAERS Safety Report 13334562 (Version 3)
Quarter: 2017Q4

REPORT INFORMATION
  Report Type: Spontaneous
  Country: CN (occurrence: CN)
  Receive Date: 20170314
  Receipt Date: 20171027
  Transmission Date: 20180320
  Serious: Yes (Other)
  Sender: FDA-Public Use
  Company Number: CN-PFIZER INC-2017101573

PATIENT
  Age: 63 Year
  Sex: Female

DRUGS (2)
  1. CARBOPLATIN. [Suspect]
     Active Substance: CARBOPLATIN
     Indication: ENDOMETRIAL CANCER
     Dosage: 6 TIMES POSTOPERATIVE CHEMOTHERAPHIES WITH CARBOPLATIN
  2. PACLITAXEL. [Suspect]
     Active Substance: PACLITAXEL
     Indication: ENDOMETRIAL CANCER
     Dosage: 6 TIMES POSTOPERATIVE CHEMOTHERAPHIES WITH PACLITAXEL

REACTIONS (1)
  - Hepatitis B reactivation [Recovering/Resolving]
